FAERS Safety Report 10648618 (Version 1)
Quarter: 2014Q4

REPORT INFORMATION
  Report Type: Spontaneous
  Country: JP (occurrence: JP)
  Receive Date: 20141212
  Receipt Date: 20141212
  Transmission Date: 20150529
  Serious: Yes (Other)
  Sender: FDA-Public Use
  Company Number: JP-BAYER-2014-180565

PATIENT
  Sex: Female
  Weight: 1.7 kg

DRUGS (6)
  1. METHYLDOPA. [Concomitant]
     Active Substance: METHYLDOPA
     Indication: HYPERTENSION
     Route: 015
  2. HYDRALAZINE [Concomitant]
     Active Substance: HYDRALAZINE HYDROCHLORIDE
     Indication: HYPERTENSION
     Route: 015
  3. ADALAT-L [Suspect]
     Active Substance: NIFEDIPINE
     Indication: HYPERTENSION
     Route: 015
  4. METHYLDOPA. [Concomitant]
     Active Substance: METHYLDOPA
     Indication: HYPERTENSION
     Route: 015
  5. HYDRALAZINE [Concomitant]
     Active Substance: HYDRALAZINE HYDROCHLORIDE
     Indication: HYPERTENSION
     Route: 015
  6. ADALAT-L [Suspect]
     Active Substance: NIFEDIPINE
     Indication: HYPERTENSION
     Route: 015

REACTIONS (4)
  - Low birth weight baby [None]
  - Maternal exposure during pregnancy [None]
  - Caesarean section [None]
  - Premature baby [None]
